FAERS Safety Report 18880228 (Version 1)
Quarter: 2021Q1

REPORT INFORMATION
  Report Type: Spontaneous
  Country: DE (occurrence: DE)
  Receive Date: 20210211
  Receipt Date: 20210211
  Transmission Date: 20210420
  Serious: Yes (Death)
  Sender: FDA-Public Use
  Company Number: DE-VERITY PHARMACEUTICALS, INC.-2021VTY00023

PATIENT
  Sex: Male

DRUGS (1)
  1. TRIPTORELIN PAMOATE [Suspect]
     Active Substance: TRIPTORELIN PAMOATE
     Indication: PROSTATE CANCER
     Route: 065

REACTIONS (4)
  - Gynaecomastia [Unknown]
  - Hyperhidrosis [Unknown]
  - Weight increased [Unknown]
  - Prostate cancer [Fatal]
